FAERS Safety Report 5346864-9 (Version None)
Quarter: 2007Q2

REPORT INFORMATION
  Report Type: 
  Country: None (occurrence: None)
  Receive Date: 20070604
  Receipt Date: 20070530
  Transmission Date: 20071010
  Serious: Yes (Life-Threatening)
  Sender: FDA-Public Use
  Company Number: 2007-01677

PATIENT
  Age: 78 Year
  Sex: Female
  Weight: 75 kg

DRUGS (3)
  1. VELCADE [Suspect]
     Indication: MULTIPLE MYELOMA
     Dosage: UNK MG, UNK, INTRAVENOUS
     Route: 042
     Dates: start: 20060419, end: 20060623
  2. DEXAMETHASONE 0.5MG TAB [Concomitant]
  3. ZOMETA [Concomitant]

REACTIONS (1)
  - NEUROPATHY PERIPHERAL [None]
